FAERS Safety Report 14303580 (Version 1)
Quarter: 2017Q4

REPORT INFORMATION
  Report Type: Spontaneous
  Country: NL (occurrence: NL)
  Receive Date: 20171219
  Receipt Date: 20171219
  Transmission Date: 20180321
  Serious: Yes (Other)
  Sender: FDA-Public Use
  Company Number: NL-OTSUKA-2015_012556

PATIENT
  Age: 35 Year
  Sex: Male

DRUGS (3)
  1. ABILIFY MAINTENA [Suspect]
     Active Substance: ARIPIPRAZOLE
     Indication: SCHIZOPHRENIA
     Dosage: 400 MG, QM
     Route: 030
  2. ABILIFY [Suspect]
     Active Substance: ARIPIPRAZOLE
     Indication: SCHIZOPHRENIA
     Dosage: UNK
     Route: 048
  3. CISORDINOL DEPOT [Concomitant]
     Active Substance: ZUCLOPENTHIXOL
     Indication: SCHIZOPHRENIA
     Dosage: UNK
     Route: 065

REACTIONS (5)
  - Suspiciousness [Not Recovered/Not Resolved]
  - Panic attack [Not Recovered/Not Resolved]
  - Post-traumatic stress disorder [Not Recovered/Not Resolved]
  - Irritability [Not Recovered/Not Resolved]
  - Anxiety [Not Recovered/Not Resolved]

NARRATIVE: CASE EVENT DATE: 201501
